FAERS Safety Report 24190892 (Version 1)
Quarter: 2024Q3

REPORT INFORMATION
  Report Type: Spontaneous
  Country: US (occurrence: US)
  Receive Date: 20240808
  Receipt Date: 20240808
  Transmission Date: 20241016
  Serious: Yes (Hospitalization, Other)
  Sender: NOVARTIS
  Company Number: US-002147023-NVSC2024US160717

PATIENT
  Age: 24 Year
  Sex: Male

DRUGS (5)
  1. CARBAMAZEPINE [Suspect]
     Active Substance: CARBAMAZEPINE
     Indication: Juvenile myoclonic epilepsy
     Dosage: RECEIVED CARBAMAZEPINE THREE TIMES DAILY
     Route: 065
  2. RISPERIDONE [Suspect]
     Active Substance: RISPERIDONE
     Indication: Juvenile myoclonic epilepsy
     Route: 065
  3. VALPORAL [Concomitant]
     Indication: Juvenile myoclonic epilepsy
     Route: 065
  4. LAMOTRIGINE [Concomitant]
     Active Substance: LAMOTRIGINE
     Indication: Juvenile myoclonic epilepsy
     Route: 065
  5. LITHIUM [Concomitant]
     Active Substance: LITHIUM
     Indication: Juvenile myoclonic epilepsy
     Route: 065

REACTIONS (4)
  - Withdrawal syndrome [Recovered/Resolved]
  - Catatonia [Recovered/Resolved]
  - Stupor [Recovered/Resolved]
  - Mutism [Recovered/Resolved]
